FAERS Safety Report 5594226-1 (Version None)
Quarter: 2008Q1

REPORT INFORMATION
  Report Type: 
  Country: None (occurrence: None)
  Receive Date: 20080117
  Receipt Date: 20080109
  Transmission Date: 20080703
  Serious: Yes (Hospitalization, Other)
  Sender: FDA-Public Use
  Company Number: US-BAYER-US-2007-034084

PATIENT
  Age: 19 Year
  Sex: Female
  Weight: 35 kg

DRUGS (3)
  1. YASMIN [Suspect]
     Indication: ACNE
     Route: 048
     Dates: start: 20070707, end: 20070801
  2. VITAMINS NOS [Concomitant]
     Indication: DRUG USE FOR UNKNOWN INDICATION
  3. LEVOXYL [Concomitant]

REACTIONS (6)
  - ABDOMINAL DISTENSION [None]
  - ALOPECIA [None]
  - ANAEMIA [None]
  - COLITIS ULCERATIVE [None]
  - DIARRHOEA [None]
  - FATIGUE [None]
